FAERS Safety Report 18961184 (Version 6)
Quarter: 2021Q3

REPORT INFORMATION
  Report Type: Report from Study
  Country: JP (occurrence: JP)
  Receive Date: 20210302
  Receipt Date: 20210916
  Transmission Date: 20211014
  Serious: Yes (Hospitalization)
  Sender: FDA-Public Use
  Company Number: JP-EISAI MEDICAL RESEARCH-EC-2020-079020

PATIENT
  Age: 2 Year
  Sex: Male
  Weight: 9.58 kg

DRUGS (29)
  1. PERAMPANEL [Suspect]
     Active Substance: PERAMPANEL
     Dosage: PLACEBO
     Route: 048
     Dates: start: 20200925, end: 20201001
  2. PERAMPANEL [Suspect]
     Active Substance: PERAMPANEL
     Dosage: OPEN?LABEL
     Route: 048
     Dates: start: 20210128, end: 20210203
  3. BACLOFEN. [Concomitant]
     Active Substance: BACLOFEN
     Indication: MUSCLE TONE DISORDER
     Route: 050
  4. HEPARINOID [Concomitant]
     Active Substance: CHONDROITIN SULFATE (BOVINE)
     Indication: DRY SKIN PROPHYLAXIS
     Route: 062
  5. ESOMEPRAZOLE MAGNESIUM HYDRATE [Concomitant]
     Active Substance: ESOMEPRAZOLE MAGNESIUM
     Indication: PROPHYLAXIS
     Route: 050
  6. PERAMPANEL [Suspect]
     Active Substance: PERAMPANEL
     Dosage: OPEN?LABEL
     Route: 048
     Dates: start: 20210204, end: 20210218
  7. GLYCERIN. [Concomitant]
     Active Substance: GLYCERIN
     Indication: CONSTIPATION PROPHYLAXIS
     Route: 054
  8. SODIUM CHLORIDE. [Concomitant]
     Active Substance: SODIUM CHLORIDE
     Indication: PHARYNGEAL DISORDER
     Route: 055
  9. AMBROXOL HYDROCHLORIDE [Concomitant]
     Active Substance: AMBROXOL HYDROCHLORIDE
     Indication: SPUTUM INCREASED
     Route: 050
  10. FAMOTIDINE. [Concomitant]
     Active Substance: FAMOTIDINE
     Indication: PROPHYLAXIS
     Route: 050
  11. SCOPOLIA EXTRACT POWDER [Concomitant]
     Indication: SPUTUM INCREASED
     Route: 050
  12. SODIUM CROMOGLICATE [Concomitant]
     Active Substance: CROMOLYN SODIUM
     Indication: ASTHMA
     Route: 055
     Dates: start: 20200813
  13. PERAMPANEL [Suspect]
     Active Substance: PERAMPANEL
     Indication: LENNOX-GASTAUT SYNDROME
     Dosage: PLACEBO
     Route: 048
     Dates: start: 20200918, end: 20200924
  14. PERAMPANEL [Suspect]
     Active Substance: PERAMPANEL
     Dosage: OPEN?LABEL
     Route: 048
     Dates: start: 20210219, end: 20210223
  15. PROCATEROL HYDROCHLORIDE HYDRATE [Concomitant]
     Indication: ASTHMA
     Route: 055
     Dates: start: 20200813
  16. HYDROCORTISONE SODIUM PHOSPHATE [Concomitant]
     Active Substance: HYDROCORTISONE SODIUM PHOSPHATE
     Indication: ASTHMA
     Route: 042
     Dates: start: 20200813
  17. PRANLUKAST HYDRATE [Concomitant]
     Active Substance: PRANLUKAST HEMIHYDRATE
     Indication: ASTHMA
     Route: 050
     Dates: start: 20200813
  18. PERAMPANEL [Suspect]
     Active Substance: PERAMPANEL
     Dosage: OPEN?LABEL
     Route: 048
     Dates: start: 20210121, end: 20210127
  19. POTASSIUM BROMIDE [Concomitant]
     Active Substance: POTASSIUM BROMIDE
     Indication: LENNOX-GASTAUT SYNDROME
     Route: 050
  20. BROMHEXINE HYDROCHLORIDE [Concomitant]
     Active Substance: BROMHEXINE HYDROCHLORIDE
     Indication: PHARYNGEAL DISORDER
     Route: 055
  21. PERAMPANEL [Suspect]
     Active Substance: PERAMPANEL
     Dosage: PLACEBO
     Route: 048
     Dates: start: 20201002, end: 20201014
  22. PERAMPANEL [Suspect]
     Active Substance: PERAMPANEL
     Dosage: PLACEBO
     Route: 048
     Dates: start: 20201015, end: 20210120
  23. PERAMPANEL [Suspect]
     Active Substance: PERAMPANEL
     Dosage: OPEN?LABEL
     Route: 048
     Dates: start: 20210224, end: 20210715
  24. L?CARBOCISTEINE [Concomitant]
     Active Substance: CARBOCYSTEINE
     Indication: SPUTUM INCREASED
     Route: 050
  25. ENEVO [Concomitant]
     Indication: NUTRITIONAL SUPPLEMENTATION
     Route: 050
  26. SOLITA?T3 [Concomitant]
     Active Substance: POTASSIUM CHLORIDE\SODIUM CHLORIDE\SODIUM LACTATE
     Indication: PROPHYLAXIS AGAINST DEHYDRATION
     Route: 054
  27. PHENOBARBITAL. [Concomitant]
     Active Substance: PHENOBARBITAL
     Indication: LENNOX-GASTAUT SYNDROME
     Route: 050
  28. ACETAZOLAMIDE. [Concomitant]
     Active Substance: ACETAZOLAMIDE
     Indication: LENNOX-GASTAUT SYNDROME
     Route: 050
  29. OFLOXACIN. [Concomitant]
     Active Substance: OFLOXACIN
     Indication: CONJUNCTIVITIS
     Route: 047

REACTIONS (5)
  - Quadriplegia [Recovered/Resolved]
  - Gastrointestinal haemorrhage [Recovering/Resolving]
  - Pneumonia [Recovered/Resolved]
  - Sleep apnoea syndrome [Not Recovered/Not Resolved]
  - Pneumonia aspiration [Recovered/Resolved]

NARRATIVE: CASE EVENT DATE: 20201009
